FAERS Safety Report 9959122 (Version 1)
Quarter: 2014Q1

REPORT INFORMATION
  Report Type: Spontaneous
  Country: US (occurrence: None)
  Receive Date: 20140228
  Receipt Date: 20140228
  Transmission Date: 20141002
  Serious: No
  Sender: FDA-Public Use
  Company Number: None

PATIENT
  Age: 34 Year
  Sex: Female
  Weight: 52.16 kg

DRUGS (1)
  1. AMPHTAMINE SALTS [Suspect]
     Indication: ATTENTION DEFICIT/HYPERACTIVITY DISORDER
     Route: 048
     Dates: start: 20140226, end: 20140227

REACTIONS (4)
  - Irritability [None]
  - Disturbance in attention [None]
  - Quality of life decreased [None]
  - Product quality issue [None]
